FAERS Safety Report 10536373 (Version 1)
Quarter: 2014Q4

REPORT INFORMATION
  Report Type: Spontaneous
  Country: US (occurrence: US)
  Receive Date: 20141022
  Receipt Date: 20141022
  Transmission Date: 20150529
  Serious: No
  Sender: FDA-Public Use
  Company Number: US-RECKITT BENCKISER PHARMACEUTICAL, INC-RB-63417-2014

PATIENT

DRUGS (2)
  1. SUBOXONE [Suspect]
     Active Substance: BUPRENORPHINE HYDROCHLORIDE\NALOXONE HYDROCHLORIDE
     Indication: DRUG DEPENDENCE
     Dosage: SUBOXONE FILM; DOSING DETAILS UNKNOWN
     Route: 060
     Dates: end: 20140201
  2. ALCOHOL. [Suspect]
     Active Substance: ALCOHOL
     Indication: SUBSTANCE USE
     Dosage: DOSING DETAILS UNKNOWN
     Route: 048
     Dates: start: 201311, end: 201311

REACTIONS (3)
  - Impaired driving ability [Recovered/Resolved]
  - Alcohol abuse [Recovered/Resolved]
  - Substance abuse [Recovered/Resolved]

NARRATIVE: CASE EVENT DATE: 201311
